FAERS Safety Report 18262302 (Version 1)
Quarter: 2020Q3

REPORT INFORMATION
  Report Type: Spontaneous
  Country: US (occurrence: US)
  Receive Date: 20200913
  Receipt Date: 20200913
  Transmission Date: 20201103
  Serious: No
  Sender: FDA-Public Use
  Company Number: None

PATIENT
  Age: 28 Year
  Sex: Female
  Weight: 117 kg

DRUGS (2)
  1. NUVARING [Concomitant]
     Active Substance: ETHINYL ESTRADIOL\ETONOGESTREL
  2. ETONOGESTREL/ETHINYL ESTRADIOL [Suspect]
     Active Substance: ETHINYL ESTRADIOL\ETONOGESTREL
     Indication: CONTRACEPTION
     Dosage: ?          OTHER FREQUENCY:ONCE A MONTH;?
     Route: 067

REACTIONS (9)
  - Weight increased [None]
  - Abdominal distension [None]
  - Sensitive skin [None]
  - Product substitution issue [None]
  - Metrorrhagia [None]
  - Breast tenderness [None]
  - Fatigue [None]
  - Abdominal pain [None]
  - Pruritus [None]

NARRATIVE: CASE EVENT DATE: 20200301
